FAERS Safety Report 16613790 (Version 3)
Quarter: 2019Q3

REPORT INFORMATION
  Report Type: Spontaneous
  Country: JP (occurrence: JP)
  Receive Date: 20190723
  Receipt Date: 20190912
  Transmission Date: 20191004
  Serious: Yes (Other)
  Sender: FDA-Public Use
  Company Number: JP-UCBSA-2019030023

PATIENT
  Age: 3 Month
  Sex: Male

DRUGS (7)
  1. TOPIRAMATE. [Concomitant]
     Active Substance: TOPIRAMATE
     Dosage: 5.5  MILLIGRAM PER KILOGRAM
     Route: 048
  2. BENZALIN [NITRAZEPAM] [Concomitant]
     Active Substance: NITRAZEPAM
     Indication: PRODUCT USED FOR UNKNOWN INDICATION
     Dosage: 0.086 MILLIGRAM/KILOGRAM PER DAY
  3. E KEPPRA [Suspect]
     Active Substance: LEVETIRACETAM
     Indication: INFANTILE SPASMS
     Dosage: 55 MILLIGRAM/KILOGRAM PER DAY
     Route: 048
  4. PHENOBARBITAL [PHENOBARBITAL SODIUM] [Concomitant]
     Active Substance: PHENOBARBITAL SODIUM
     Indication: PRODUCT USED FOR UNKNOWN INDICATION
     Dosage: UNK
  5. TOPIRAMATE. [Concomitant]
     Active Substance: TOPIRAMATE
     Route: 048
  6. TOPIRAMATE. [Concomitant]
     Active Substance: TOPIRAMATE
     Indication: PRODUCT USED FOR UNKNOWN INDICATION
     Dosage: UNK
     Route: 048
  7. E KEPPRA [Suspect]
     Active Substance: LEVETIRACETAM
     Indication: OFF LABEL USE
     Dosage: DOSE INCREASED
     Route: 048

REACTIONS (2)
  - Epilepsy [Recovered/Resolved]
  - Off label use [Unknown]
